FAERS Safety Report 4340656-5 (Version None)
Quarter: 2004Q2

REPORT INFORMATION
  Report Type: 
  Country: None (occurrence: None)
  Receive Date: 20040413
  Receipt Date: 20040401
  Transmission Date: 20050107
  Serious: Yes (Other)
  Sender: FDA-Public Use
  Company Number: US-JNJFOC-20040400362

PATIENT
  Sex: Female

DRUGS (1)
  1. REMICADE [Suspect]
     Dosage: INTRAVENOUS
     Route: 042
     Dates: start: 20020601

REACTIONS (2)
  - BREAST CANCER FEMALE [None]
  - TUBERCULOSIS [None]
